FAERS Safety Report 5918751-6 (Version None)
Quarter: 2008Q4

REPORT INFORMATION
  Report Type: 
  Country: None (occurrence: None)
  Receive Date: 20081015
  Receipt Date: 20080718
  Transmission Date: 20090506
  Serious: No
  Sender: FDA-Public Use
  Company Number: US-ASTRAZENECA-2008UW15085

PATIENT
  Age: 63 Year
  Sex: Female
  Weight: 61.2 kg

DRUGS (11)
  1. SYMBICORT [Suspect]
     Indication: ASTHMA
     Dosage: 160/4.5 UG, 2 INHALATIONS, TWICE A DAY
     Route: 055
  2. SYMBICORT [Suspect]
     Indication: CHRONIC OBSTRUCTIVE PULMONARY DISEASE
     Dosage: 160/4.5 UG, 2 INHALATIONS, TWICE A DAY
     Route: 055
  3. SINGULAIR [Concomitant]
  4. ZYRTEC [Concomitant]
  5. RHINOCORT [Concomitant]
  6. ASTELIN [Concomitant]
  7. PREMARIN [Concomitant]
  8. FOLIC ACID [Concomitant]
  9. SPIRIVA [Concomitant]
  10. ATROVENT [Concomitant]
  11. PROVENTIL [Concomitant]

REACTIONS (1)
  - DRUG INEFFECTIVE [None]
